FAERS Safety Report 6758415-2 (Version None)
Quarter: 2010Q2

REPORT INFORMATION
  Report Type: 
  Country: None (occurrence: None)
  Receive Date: 20100603
  Receipt Date: 20100513
  Transmission Date: 20101027
  Serious: Yes (Other)
  Sender: FDA-Public Use
  Company Number: M1002364

PATIENT
  Age: 55 Year
  Sex: Female

DRUGS (3)
  1. DIVIGEL [Suspect]
     Indication: DRUG USE FOR UNKNOWN INDICATION
     Dosage: 1 IN 1D, TOPICAL
     Route: 061
     Dates: start: 20100423, end: 20100427
  2. VALTREX [Concomitant]
  3. LORAZEPAM [Concomitant]

REACTIONS (2)
  - CEREBROVASCULAR ACCIDENT [None]
  - DEPRESSION [None]
